FAERS Safety Report 18231565 (Version 5)
Quarter: 2020Q4

REPORT INFORMATION
  Report Type: Spontaneous
  Country: US (occurrence: US)
  Receive Date: 20200904
  Receipt Date: 20201015
  Transmission Date: 20210113
  Serious: Yes (Hospitalization, Other)
  Sender: FDA-Public Use
  Company Number: US-GLAXOSMITHKLINE-US2020175343

PATIENT
  Age: 40 Year
  Sex: Female

DRUGS (2)
  1. BENLYSTA [Suspect]
     Active Substance: BELIMUMAB
     Indication: SYSTEMIC LUPUS ERYTHEMATOSUS
     Dosage: UNK
     Route: 065
     Dates: start: 20200831
  2. BENLYSTA [Suspect]
     Active Substance: BELIMUMAB
     Indication: SYSTEMIC LUPUS ERYTHEMATOSUS
     Dosage: UNK
     Route: 065
     Dates: start: 20200831

REACTIONS (12)
  - Incorrect dose administered [Unknown]
  - Chest pain [Unknown]
  - Burning sensation [Unknown]
  - Dizziness [Unknown]
  - Feeling hot [Unknown]
  - Disturbance in attention [Unknown]
  - Throat tightness [Unknown]
  - Dyspnoea [Unknown]
  - Chest discomfort [Unknown]
  - Injection site bruising [Unknown]
  - Mental impairment [Unknown]
  - Illness [Unknown]

NARRATIVE: CASE EVENT DATE: 20200831
